FAERS Safety Report 5223711-7 (Version None)
Quarter: 2007Q1

REPORT INFORMATION
  Report Type: 
  Country: None (occurrence: None)
  Receive Date: 20070126
  Receipt Date: 20070112
  Transmission Date: 20070707
  Serious: Yes (Life-Threatening)
  Sender: FDA-Public Use
  Company Number: 8021382

PATIENT
  Age: 76 Year
  Sex: Female

DRUGS (7)
  1. KEPPRA [Suspect]
     Indication: EPILEPSY
     Dosage: 2 DF 1/D PO
     Route: 048
  2. ALEPSAL [Suspect]
     Indication: EPILEPSY
     Dosage: 50 MG 1/D PO
     Route: 048
  3. DI HYDAN [Suspect]
     Indication: EPILEPSY
     Dosage: 200 MG 1/D PO
     Route: 048
  4. TRAMADOL HCL [Concomitant]
  5. LEVOTHYROXINE SODIUM [Concomitant]
  6. CORDARONE [Concomitant]
  7. DUPHALAC [Concomitant]

REACTIONS (3)
  - ENCEPHALOPATHY [None]
  - HYPONATRAEMIA [None]
  - UPPER GASTROINTESTINAL HAEMORRHAGE [None]
